FAERS Safety Report 20130993 (Version 1)
Quarter: 2021Q4

REPORT INFORMATION
  Report Type: Spontaneous
  Country: US (occurrence: US)
  Receive Date: 20211130
  Receipt Date: 20211130
  Transmission Date: 20220303
  Serious: No
  Sender: FDA-Public Use
  Company Number: US-GALDERMA-US2021017778

PATIENT

DRUGS (7)
  1. PROACTIV MD ADAPALENE ACNE TREATMENT [Suspect]
     Active Substance: ADAPALENE
     Indication: Acne
     Dosage: 1 DOSAGE FORM, PRN
     Route: 061
     Dates: start: 2019, end: 202107
  2. PROACTIV MD ADAPALENE ACNE TREATMENT [Suspect]
     Active Substance: ADAPALENE
     Dosage: 1 DOSAGE FORM, BIW
     Route: 061
     Dates: start: 2019, end: 202107
  3. PROACTIV BLACKHEAD DISSOLVING [Concomitant]
     Active Substance: SALICYLIC ACID
     Indication: Acne
     Dosage: 1 DOSAGE FORM, PRN
     Route: 061
     Dates: start: 2019, end: 202107
  4. PROACTIV BLACKHEAD DISSOLVING [Concomitant]
     Active Substance: SALICYLIC ACID
     Dosage: 1 DOSAGE FORM, BIW
     Route: 061
     Dates: start: 2019, end: 202107
  5. COSMETICS [Concomitant]
     Active Substance: COSMETICS
     Indication: Acne
     Dosage: 1 DOSAGE FORM, PRN
     Route: 061
     Dates: start: 2019, end: 202107
  6. COSMETICS [Concomitant]
     Active Substance: COSMETICS
     Dosage: 1 DOSAGE FORM, BIW
     Route: 061
     Dates: start: 2019, end: 202107
  7. RETINOL A [Concomitant]
     Indication: Skin wrinkling
     Dosage: UNK
     Route: 061
     Dates: start: 202101

REACTIONS (6)
  - Rash [Recovered/Resolved]
  - Dermatitis contact [Recovered/Resolved]
  - Dry skin [Recovered/Resolved]
  - Drug interaction [Recovered/Resolved]
  - Inappropriate schedule of product administration [Recovered/Resolved]
  - Underdose [Recovered/Resolved]

NARRATIVE: CASE EVENT DATE: 20190101
